FAERS Safety Report 9369469 (Version 1)
Quarter: 2013Q2

REPORT INFORMATION
  Report Type: Spontaneous
  Country: NL (occurrence: None)
  Receive Date: 20130621
  Receipt Date: 20130621
  Transmission Date: 20140414
  Serious: Yes (Other)
  Sender: FDA-Public Use
  Company Number: AG-2013-014079

PATIENT
  Age: 37 Year
  Sex: Female

DRUGS (1)
  1. TIOGUANINE [Suspect]
     Indication: COLITIS ULCERATIVE

REACTIONS (2)
  - Arthralgia [None]
  - Myalgia [None]
